FAERS Safety Report 11532794 (Version 2)
Quarter: 2015Q4

REPORT INFORMATION
  Report Type: Spontaneous
  Country: CH (occurrence: BR)
  Receive Date: 20150921
  Receipt Date: 20151013
  Transmission Date: 20160304
  Serious: Yes (Other)
  Sender: FDA-Public Use
  Company Number: CH-LPDUSPRD-20150704

PATIENT
  Age: 49 Year
  Sex: Female
  Weight: 70 kg

DRUGS (2)
  1. VENOFER [Suspect]
     Active Substance: IRON SUCROSE
     Dosage: 5 AMPOULES/500ML OF SALINE
     Route: 042
     Dates: start: 20150803, end: 20150803
  2. VITAMIN D3 [Concomitant]
     Active Substance: CHOLECALCIFEROL
     Dosage: DOSE NOT PROVIDED
     Route: 065

REACTIONS (5)
  - Dizziness [Unknown]
  - Hypersensitivity [Unknown]
  - Tachycardia [Unknown]
  - Hyperhidrosis [Unknown]
  - Incorrect drug administration rate [Unknown]

NARRATIVE: CASE EVENT DATE: 201508
